FAERS Safety Report 21254073 (Version 5)
Quarter: 2023Q1

REPORT INFORMATION
  Report Type: Spontaneous
  Country: US (occurrence: US)
  Receive Date: 20220825
  Receipt Date: 20230109
  Transmission Date: 20230417
  Serious: Yes (Other)
  Sender: FDA-Public Use
  Company Number: US-PFIZER INC-202201089705

PATIENT
  Age: 82 Year
  Sex: Female
  Weight: 75.3 kg

DRUGS (14)
  1. PAXLOVID [Suspect]
     Active Substance: NIRMATRELVIR\RITONAVIR
     Indication: COVID-19 treatment
     Dosage: UNK
     Route: 048
     Dates: start: 20220821, end: 20220825
  2. ACYCLOVIR [Concomitant]
     Active Substance: ACYCLOVIR
     Dosage: 800 MG, 1X/DAY
  3. CELEBREX [Concomitant]
     Active Substance: CELECOXIB
     Dosage: 200 MG, 1X/DAY
  4. METOPROLOL [Concomitant]
     Active Substance: METOPROLOL
     Dosage: 25 MG, 1X/DAY
  5. VITAMIN D3 [Concomitant]
     Active Substance: CHOLECALCIFEROL
     Dosage: UNK, 1X/DAY (1000IU 2.5 MCG)
  6. FUROSEMIDE [Concomitant]
     Active Substance: FUROSEMIDE
     Dosage: 28 MG, 1X/DAY
  7. NYSTATIN [Concomitant]
     Active Substance: NYSTATIN
     Dosage: UNK, AS NEEDED (100K PER GRAM)
  8. TRIAMCINOLONE ACETONIDE [Concomitant]
     Active Substance: TRIAMCINOLONE ACETONIDE
     Dosage: 1 %, AS NEEDED (THOSE TWO MIXED THEN)
  9. NITROGLYCERIN [Concomitant]
     Active Substance: NITROGLYCERIN
     Dosage: 5 %, AS NEEDED
  10. ALENDRONATE SODIUM [Concomitant]
     Active Substance: ALENDRONATE SODIUM
     Dosage: 70 MG, WEEKLY (1X WEEK)
  11. ESO [Concomitant]
     Dosage: UNK, AS NEEDED
  12. CALCIUM [Concomitant]
     Active Substance: CALCIUM
     Dosage: UNK (CHEWS; WHEN I REMEMBER)
  13. VITAMIN C [Concomitant]
     Active Substance: ASCORBIC ACID
     Dosage: 250 MG (GUMMIES; WHEN I REMEMBER)
  14. FLUCONAZOLE [Concomitant]
     Active Substance: FLUCONAZOLE
     Dosage: 150 MG (YEAST; AS PRESCRIBED ONLY ONCE)

REACTIONS (6)
  - Productive cough [Not Recovered/Not Resolved]
  - COVID-19 [Not Recovered/Not Resolved]
  - Dysgeusia [Recovered/Resolved]
  - Headache [Unknown]
  - Pyrexia [Not Recovered/Not Resolved]
  - Influenza like illness [Unknown]

NARRATIVE: CASE EVENT DATE: 20220801
